FAERS Safety Report 4832586-7 (Version None)
Quarter: 2005Q4

REPORT INFORMATION
  Report Type: 
  Country: None (occurrence: None)
  Receive Date: 20051117
  Receipt Date: 20051108
  Transmission Date: 20060501
  Serious: Yes (Hospitalization)
  Sender: FDA-Public Use
  Company Number: TPA2005A01135

PATIENT
  Age: 45 Year
  Sex: Female
  Weight: 111.1313 kg

DRUGS (6)
  1. ACTOS [Suspect]
     Indication: DIABETES MELLITUS NON-INSULIN-DEPENDENT
     Dosage: 15 MG, 1 IN 1 D, PER ORAL
     Route: 048
     Dates: start: 20010927
  2. LANTUS (INSULIN GLARGINE) (60 IU (INTERNATIONAL UNIT), INJECTION [Concomitant]
  3. TARKA (UDRAMIL) [Concomitant]
  4. EFFEXOR [Concomitant]
  5. PREVACID [Concomitant]
  6. OXYCODONE/APAP (OXYCODONE/APAP) [Concomitant]

REACTIONS (3)
  - CRUSH INJURY [None]
  - ROAD TRAFFIC ACCIDENT [None]
  - SPINAL FRACTURE [None]
